FAERS Safety Report 5833061-3 (Version None)
Quarter: 2008Q3

REPORT INFORMATION
  Report Type: 
  Country: None (occurrence: None)
  Receive Date: 20080805
  Receipt Date: 20080730
  Transmission Date: 20090109
  Serious: Yes (Hospitalization)
  Sender: FDA-Public Use
  Company Number: US-ASTRAZENECA-2008UW14353

PATIENT
  Age: 22461 Day
  Sex: Female

DRUGS (9)
  1. STUDY PROCEDURE [Suspect]
  2. ROSUVASTATIN CODE NOT BROKEN [Suspect]
     Indication: CORONARY ARTERY DISEASE
     Dates: start: 20080727
  3. BENICAR [Concomitant]
     Indication: HYPERTENSION
  4. NORVASC [Concomitant]
     Indication: HYPERTENSION
  5. LEVOTHYROXINE SODIUM [Concomitant]
     Indication: THYROID DISORDER
  6. CELEBREX [Concomitant]
     Indication: SPINAL OSTEOARTHRITIS
  7. MULTI-VITAMIN [Concomitant]
     Indication: PROPHYLAXIS
  8. ASPIRIN [Concomitant]
     Indication: CORONARY ARTERY DISEASE
  9. TRAMADOL HCL [Concomitant]
     Indication: SPINAL OSTEOARTHRITIS

REACTIONS (1)
  - POST PROCEDURAL HAEMORRHAGE [None]
